FAERS Safety Report 4869560-0 (Version None)
Quarter: 2005Q4

REPORT INFORMATION
  Report Type: 
  Country: None (occurrence: None)
  Receive Date: 20051223
  Receipt Date: 20051212
  Transmission Date: 20060501
  Serious: Yes (Hospitalization)
  Sender: FDA-Public Use
  Company Number: 2005-135829-NL

PATIENT
  Age: 34 Year
  Sex: Male

DRUGS (2)
  1. MIRTAZAPINE [Suspect]
  2. OLANZAPINE [Suspect]

REACTIONS (4)
  - INTENTIONAL DRUG MISUSE [None]
  - IRRITABILITY [None]
  - PRESCRIBED OVERDOSE [None]
  - SUICIDE ATTEMPT [None]
